FAERS Safety Report 8030994-7 (Version None)
Quarter: 2012Q1

REPORT INFORMATION
  Report Type: 
  Country: None (occurrence: None)
  Receive Date: 20120109
  Receipt Date: 20120104
  Transmission Date: 20120608
  Serious: Yes (Other)
  Sender: FDA-Public Use
  Company Number: US-JNJFOC-20111202357

PATIENT
  Sex: Female

DRUGS (5)
  1. MULTI-VITAMINS [Concomitant]
     Route: 065
  2. ASPIRIN [Concomitant]
     Route: 065
  3. REMICADE [Suspect]
     Indication: CROHN'S DISEASE
     Dosage: LAST INFUSION
     Route: 042
     Dates: start: 20111107
  4. REMICADE [Suspect]
     Dosage: 5MG/KG DOSE ONCE IN EVERY 6-8 WEEKS
     Route: 042
     Dates: start: 20070901
  5. ZOLOFT [Concomitant]
     Indication: DEPRESSION
     Route: 065

REACTIONS (2)
  - THROMBOSIS [None]
  - MATERNAL EXPOSURE DURING PREGNANCY [None]
